FAERS Safety Report 8112297-5 (Version None)
Quarter: 2012Q1

REPORT INFORMATION
  Report Type: 
  Country: None (occurrence: None)
  Receive Date: 20120203
  Receipt Date: 20120203
  Transmission Date: 20120608
  Serious: Yes (Hospitalization)
  Sender: FDA-Public Use
  Company Number: None

PATIENT
  Age: 83 Year
  Sex: Female
  Weight: 56.699 kg

DRUGS (2)
  1. ACTONEL [Suspect]
     Indication: PROPHYLAXIS
     Dosage: 1 TABLET
     Route: 048
     Dates: start: 19911001, end: 20111002
  2. ACTONEL [Suspect]
     Indication: BONE DENSITY DECREASED
     Dosage: 1 TABLET
     Route: 048
     Dates: start: 19911001, end: 20111002

REACTIONS (4)
  - UPPER LIMB FRACTURE [None]
  - ECONOMIC PROBLEM [None]
  - FALL [None]
  - DRUG INEFFECTIVE [None]
